FAERS Safety Report 4721388-8 (Version None)
Quarter: 2005Q3

REPORT INFORMATION
  Report Type: 
  Country: None (occurrence: None)
  Receive Date: 20050721
  Receipt Date: 20040802
  Transmission Date: 20060218
  Serious: No
  Sender: FDA-Public Use
  Company Number: US-BRISTOL-MYERS SQUIBB COMPANY-12657797

PATIENT
  Age: 71 Year
  Sex: Female
  Weight: 63 kg

DRUGS (12)
  1. COUMADIN [Suspect]
     Indication: ATRIAL FIBRILLATION
     Dosage: 7.5MG X 4 DAYS + 5MG X 3 DAYS=45MG/WK
     Route: 048
  2. COLACE [Concomitant]
  3. CITRUCEL [Concomitant]
     Dates: end: 20040701
  4. ACTONEL [Concomitant]
  5. GLUCOPHAGE XR [Concomitant]
  6. LIPITOR [Concomitant]
  7. ZETIA [Concomitant]
  8. FOLIC ACID [Concomitant]
  9. DIGOXIN [Concomitant]
  10. ATENOLOL [Concomitant]
  11. VITAMIN B-12 [Concomitant]
  12. VITAMIN B6 [Concomitant]

REACTIONS (3)
  - CONSTIPATION [None]
  - GASTROINTESTINAL OBSTRUCTION [None]
  - INTERNATIONAL NORMALISED RATIO FLUCTUATION [None]
